FAERS Safety Report 25182917 (Version 1)
Quarter: 2025Q2

REPORT INFORMATION
  Report Type: Spontaneous
  Country: SE (occurrence: SE)
  Receive Date: 20250410
  Receipt Date: 20250410
  Transmission Date: 20250717
  Serious: Yes (Disabling)
  Sender: CHEPLAPHARM
  Company Number: None

PATIENT
  Age: 16 Year
  Sex: Female
  Weight: 85 kg

DRUGS (6)
  1. QUETIAPINE [Suspect]
     Active Substance: QUETIAPINE
     Indication: Anxiety
     Dates: start: 20230512, end: 20250129
  2. QUETIAPINE [Suspect]
     Active Substance: QUETIAPINE
     Indication: Insomnia
     Dates: start: 20230512, end: 20250129
  3. QUETIAPINE [Suspect]
     Active Substance: QUETIAPINE
     Indication: Anxiety
     Dosage: 50 MG: 2  T. KL 20?DAILY DOSE: 100 MILLIGRAM
     Dates: start: 20240101, end: 20250129
  4. QUETIAPINE [Suspect]
     Active Substance: QUETIAPINE
     Indication: Insomnia
     Dosage: 50 MG: 2  T. KL 20?DAILY DOSE: 100 MILLIGRAM
     Dates: start: 20240101, end: 20250129
  5. OLANZAPINE [Suspect]
     Active Substance: OLANZAPINE
     Indication: Insomnia
     Dates: start: 20250129, end: 20250310
  6. OLANZAPINE [Suspect]
     Active Substance: OLANZAPINE
     Indication: Anxiety
     Dates: start: 20250129, end: 20250310

REACTIONS (9)
  - Weight increased [Recovering/Resolving]
  - Anxiety [Recovering/Resolving]
  - Depression [Recovering/Resolving]
  - Hunger [Recovering/Resolving]
  - Skin striae [Recovering/Resolving]
  - General physical health deterioration [Unknown]
  - Dyspnoea [Unknown]
  - Hyperhidrosis [Unknown]
  - Product use in unapproved indication [Unknown]

NARRATIVE: CASE EVENT DATE: 20240202
